FAERS Safety Report 19656594 (Version 1)
Quarter: 2021Q3

REPORT INFORMATION
  Report Type: Report from Study
  Country: DE (occurrence: DE)
  Receive Date: 20210804
  Receipt Date: 20210804
  Transmission Date: 20211014
  Serious: Yes (Other)
  Sender: FDA-Public Use
  Company Number: DE-EMD SERONO-9255063

PATIENT
  Age: 61 Year
  Sex: Female

DRUGS (1)
  1. REBIF [Suspect]
     Active Substance: INTERFERON BETA-1A
     Indication: MULTIPLE SCLEROSIS
     Route: 058
     Dates: start: 20091202

REACTIONS (5)
  - Cardiac operation [Recovered/Resolved]
  - Medical induction of coma [Recovered/Resolved]
  - Pneumonia [Recovered/Resolved]
  - Renal impairment [Recovered/Resolved]
  - Pneumothorax [Recovered/Resolved]
